FAERS Safety Report 16534121 (Version 2)
Quarter: 2019Q3

REPORT INFORMATION
  Report Type: Spontaneous
  Country: JP (occurrence: JP)
  Receive Date: 20190705
  Receipt Date: 20190709
  Transmission Date: 20191004
  Serious: Yes (Death, Other)
  Sender: FDA-Public Use
  Company Number: JP-OTSUKA-2019_023339

PATIENT
  Age: 96 Year
  Sex: Male

DRUGS (1)
  1. SAMSCA [Suspect]
     Active Substance: TOLVAPTAN
     Indication: OEDEMA DUE TO HEPATIC DISEASE
     Dosage: 3.75 MG, QD
     Route: 048
     Dates: start: 20190315, end: 20190325

REACTIONS (4)
  - Dehydration [Unknown]
  - Hepatic cancer [Fatal]
  - Hypernatraemia [Recovering/Resolving]
  - Hypernatraemia [Recovering/Resolving]

NARRATIVE: CASE EVENT DATE: 20190325
